FAERS Safety Report 4975081-7 (Version None)
Quarter: 2006Q2

REPORT INFORMATION
  Report Type: 
  Country: None (occurrence: None)
  Receive Date: 20060411
  Receipt Date: 20060329
  Transmission Date: 20061013
  Serious: Yes (Other)
  Sender: FDA-Public Use
  Company Number: UKP06000029

PATIENT
  Age: 77 Year
  Sex: Female
  Weight: 75 kg

DRUGS (7)
  1. ACTONEL [Suspect]
     Indication: OSTEOPOROSIS
     Dosage: 35 MG, 1/WEEK; ORAL
     Route: 048
     Dates: start: 20060117
  2. COVERSYL PLUS (PERINDOPRIL ERBUMINE, INDAPAMIDE) [Concomitant]
  3. CARDURA XL [Concomitant]
  4. LESCOL [Concomitant]
  5. SEREVENT [Concomitant]
  6. BECLAZONE (BECLOMETASONE DIPROPIONATE) [Concomitant]
  7. ASPIRIN [Concomitant]

REACTIONS (1)
  - STEVENS-JOHNSON SYNDROME [None]
